FAERS Safety Report 8079209-4 (Version None)
Quarter: 2012Q1

REPORT INFORMATION
  Report Type: 
  Country: None (occurrence: None)
  Receive Date: 20120128
  Receipt Date: 20110805
  Transmission Date: 20120608
  Serious: No
  Sender: FDA-Public Use
  Company Number: US-ABBOTT-11P-163-0845534-00

PATIENT
  Sex: Female
  Weight: 65.83 kg

DRUGS (5)
  1. RISPERDAL [Concomitant]
     Indication: BIPOLAR DISORDER
  2. ASACOL [Concomitant]
     Indication: COLITIS ULCERATIVE
  3. HUMIRA [Suspect]
     Indication: ANKYLOSING SPONDYLITIS
     Dates: start: 20090801
  4. LITHIUM CARBONATE [Concomitant]
     Indication: BIPOLAR DISORDER
  5. LAMICTAL [Concomitant]
     Indication: BIPOLAR DISORDER

REACTIONS (6)
  - EYE PAIN [None]
  - MIGRAINE [None]
  - MEMORY IMPAIRMENT [None]
  - MENTAL IMPAIRMENT [None]
  - BRADYPHRENIA [None]
  - FEELING ABNORMAL [None]
